FAERS Safety Report 6932500-4 (Version None)
Quarter: 2010Q3

REPORT INFORMATION
  Report Type: 
  Country: None (occurrence: None)
  Receive Date: 20100819
  Receipt Date: 20100809
  Transmission Date: 20110219
  Serious: Yes (Hospitalization)
  Sender: FDA-Public Use
  Company Number: FR-MERCK-1008FRA00022

PATIENT
  Age: 45 Year
  Sex: Male

DRUGS (8)
  1. PRIMAXIN [Suspect]
     Indication: POSTOPERATIVE FEVER
     Route: 042
     Dates: start: 20100317, end: 20100328
  2. PRIMAXIN [Suspect]
     Route: 042
     Dates: start: 20100403, end: 20100416
  3. VANCOMYCIN HYDROCHLORIDE [Suspect]
     Indication: POSTOPERATIVE FEVER
     Route: 042
     Dates: start: 20100317, end: 20100328
  4. VANCOMYCIN HYDROCHLORIDE [Suspect]
     Route: 042
     Dates: start: 20100403, end: 20100416
  5. RIFAMPIN [Suspect]
     Indication: PYREXIA
     Route: 042
     Dates: start: 20100403, end: 20100408
  6. ENOXAPARIN SODIUM [Concomitant]
     Route: 058
  7. METOCLOPRAMIDE HYDROCHLORIDE [Concomitant]
     Route: 048
  8. ZOPICLONE [Concomitant]
     Route: 048

REACTIONS (5)
  - CHOLESTASIS [None]
  - CYTOLYTIC HEPATITIS [None]
  - HYPERSENSITIVITY [None]
  - MACROPHAGE ACTIVATION [None]
  - TUBULOINTERSTITIAL NEPHRITIS [None]
